FAERS Safety Report 11916168 (Version 1)
Quarter: 2016Q1

REPORT INFORMATION
  Report Type: Spontaneous
  Country: US (occurrence: None)
  Receive Date: 20160113
  Receipt Date: 20160113
  Transmission Date: 20160526
  Serious: Yes (Disabling)
  Sender: FDA-Public Use
  Company Number: None

PATIENT
  Age: 82 Year
  Sex: Female
  Weight: 60.78 kg

DRUGS (7)
  1. CALCIUM [Concomitant]
     Active Substance: CALCIUM
  2. VIT. D3 [Concomitant]
  3. OSTEOBIFLEX [Concomitant]
  4. RESTASIS [Suspect]
     Active Substance: CYCLOSPORINE
     Indication: DRY EYE
     Route: 047
     Dates: start: 20151123, end: 20151128
  5. VITAMIN C [Concomitant]
     Active Substance: ASCORBIC ACID
  6. OCUVITE [Concomitant]
     Active Substance: VITAMINS
  7. COENZYME Q10 [Concomitant]
     Active Substance: UBIDECARENONE

REACTIONS (4)
  - Blindness [None]
  - Instillation site erythema [None]
  - Instillation site pain [None]
  - Vision blurred [None]

NARRATIVE: CASE EVENT DATE: 20151122
